FAERS Safety Report 19498954 (Version 56)
Quarter: 2023Q2

REPORT INFORMATION
  Report Type: Spontaneous
  Country: GB (occurrence: None)
  Receive Date: 20210707
  Receipt Date: 20230411
  Transmission Date: 20230721
  Serious: Yes (Hospitalization, Other)
  Sender: FDA-Public Use
  Company Number: GB-PFIZER INC-2019511224

PATIENT
  Age: 68 Year
  Sex: Female
  Weight: 92 kg

DRUGS (216)
  1. METHOTREXATE [Suspect]
     Active Substance: METHOTREXATE
     Indication: Rheumatoid arthritis
     Dosage: 17.5 MILLIGRAM, Q.W., UNK UNK, Q.W., WEEKLY, AT 17.5 (UNKNOWN UNIT)
     Dates: start: 20100917
  2. METHOTREXATE [Suspect]
     Active Substance: METHOTREXATE
     Indication: Medication error
  3. METHOTREXATE [Suspect]
     Active Substance: METHOTREXATE
     Dosage: (AT 17.5, WEEKLY)
     Dates: start: 20100917
  4. METHOTREXATE [Suspect]
     Active Substance: METHOTREXATE
     Dosage: 17.5 MILLIGRAM, Q.W., UNK UNK, Q.W., WEEKLY, AT 17.5 (UNKNOWN UNIT)
     Dates: start: 20100917
  5. METHOTREXATE [Suspect]
     Active Substance: METHOTREXATE
     Dates: start: 20100917
  6. METHOTREXATE [Suspect]
     Active Substance: METHOTREXATE
  7. METHOTREXATE [Suspect]
     Active Substance: METHOTREXATE
  8. METHOTREXATE [Suspect]
     Active Substance: METHOTREXATE
  9. METHOTREXATE [Suspect]
     Active Substance: METHOTREXATE
     Dates: start: 20100917
  10. METHOTREXATE [Suspect]
     Active Substance: METHOTREXATE
     Dosage: 17.5 MILLIGRAM, Q.W., UNK UNK, Q.W., WEEKLY, AT 17.5 (UNKNOWN UNIT)
     Dates: start: 20100917
  11. METHOTREXATE [Suspect]
     Active Substance: METHOTREXATE
     Dates: start: 20100917
  12. METHOTREXATE [Suspect]
     Active Substance: METHOTREXATE
     Dosage: 18 MG, PER WEEK (UNKNOWN, WEEKLY, QW (AT 17.5, WEEKLY))
     Dates: start: 20100917
  13. ENBREL [Suspect]
     Active Substance: ETANERCEPT
     Indication: Rheumatoid arthritis
     Dosage: MYCLIC PENS
     Dates: start: 20100917
  14. ENBREL [Suspect]
     Active Substance: ETANERCEPT
     Dosage: MYCLIC PENS
     Dates: start: 20210917
  15. ENBREL [Suspect]
     Active Substance: ETANERCEPT
  16. ENBREL [Suspect]
     Active Substance: ETANERCEPT
     Dosage: MYCLIC PEN
  17. ENBREL [Suspect]
     Active Substance: ETANERCEPT
     Dosage: MYCLIC PENS
     Dates: start: 20100917
  18. ENBREL [Suspect]
     Active Substance: ETANERCEPT
     Dosage: MYCLIC PENS
     Dates: start: 20210917
  19. CIPROFLOXACIN [Suspect]
     Active Substance: CIPROFLOXACIN
     Indication: Abdominal discomfort
     Dates: start: 20100917
  20. CIPROFLOXACIN [Suspect]
     Active Substance: CIPROFLOXACIN
     Indication: Depression
     Dates: start: 20200917
  21. CIPROFLOXACIN [Suspect]
     Active Substance: CIPROFLOXACIN
     Indication: Rheumatoid arthritis
  22. CIPROFLOXACIN [Suspect]
     Active Substance: CIPROFLOXACIN
     Dates: start: 20200917
  23. CIPROFLOXACIN [Suspect]
     Active Substance: CIPROFLOXACIN
  24. CIPROFLOXACIN [Suspect]
     Active Substance: CIPROFLOXACIN
     Dates: start: 20100917
  25. CIPROFLOXACIN [Suspect]
     Active Substance: CIPROFLOXACIN
     Dates: start: 20100917
  26. CIPROFLOXACIN [Suspect]
     Active Substance: CIPROFLOXACIN
     Dosage: BATCH AND LOT TESTED AND FOUND WITHIN SPECIFICATIONS
     Dates: start: 20100917
  27. VENLAFAXINE HYDROCHLORIDE [Suspect]
     Active Substance: VENLAFAXINE HYDROCHLORIDE
     Indication: Rheumatoid arthritis
  28. VENLAFAXINE HYDROCHLORIDE [Suspect]
     Active Substance: VENLAFAXINE HYDROCHLORIDE
     Indication: Depression
  29. VENLAFAXINE HYDROCHLORIDE [Suspect]
     Active Substance: VENLAFAXINE HYDROCHLORIDE
  30. VENLAFAXINE HYDROCHLORIDE [Suspect]
     Active Substance: VENLAFAXINE HYDROCHLORIDE
  31. VENLAFAXINE HYDROCHLORIDE [Suspect]
     Active Substance: VENLAFAXINE HYDROCHLORIDE
  32. VENLAFAXINE HYDROCHLORIDE [Suspect]
     Active Substance: VENLAFAXINE HYDROCHLORIDE
  33. VENLAFAXINE HYDROCHLORIDE [Suspect]
     Active Substance: VENLAFAXINE HYDROCHLORIDE
     Dosage: 225 MG, DAILY, ONCE A DAY, PROLONGED RELEASE
  34. OMEPRAZOLE [Suspect]
     Active Substance: OMEPRAZOLE
     Indication: Abdominal discomfort
     Dosage: BATCH AND LOT TESTED AND FOUND WITHIN SPECIFICATIONS
     Dates: start: 20100917
  35. OMEPRAZOLE [Suspect]
     Active Substance: OMEPRAZOLE
     Dates: start: 20100917
  36. OMEPRAZOLE [Suspect]
     Active Substance: OMEPRAZOLE
     Dosage: 20 MG, 2X/DAY FOR STOMACH
     Dates: start: 20100917
  37. OMEPRAZOLE [Suspect]
     Active Substance: OMEPRAZOLE
     Dates: start: 20200917
  38. OMEPRAZOLE [Suspect]
     Active Substance: OMEPRAZOLE
     Dosage: 480 MILLIGRAM DAILY; 20 MG, 2X/DAY
  39. OMEPRAZOLE [Suspect]
     Active Substance: OMEPRAZOLE
     Dosage: 480 MILLIGRAM DAILY; 20 MG, 2X/DAY
  40. OMEPRAZOLE [Suspect]
     Active Substance: OMEPRAZOLE
     Dosage: 20 MG, 4 TIMES PER DAY
     Dates: start: 20100917
  41. OMEPRAZOLE [Suspect]
     Active Substance: OMEPRAZOLE
     Dosage: 20 MG, 2X/DAY
     Dates: start: 20100917
  42. OMEPRAZOLE [Suspect]
     Active Substance: OMEPRAZOLE
     Dates: start: 20100917
  43. OMEPRAZOLE [Suspect]
     Active Substance: OMEPRAZOLE
     Dates: start: 20100917
  44. OMEPRAZOLE [Suspect]
     Active Substance: OMEPRAZOLE
     Dosage: 20 MG, 4 TIMES PER DAY
     Dates: start: 20100917
  45. OMEPRAZOLE [Suspect]
     Active Substance: OMEPRAZOLE
  46. OMEPRAZOLE [Suspect]
     Active Substance: OMEPRAZOLE
  47. OMEPRAZOLE [Suspect]
     Active Substance: OMEPRAZOLE
     Dates: start: 20200917
  48. OMEPRAZOLE [Suspect]
     Active Substance: OMEPRAZOLE
  49. OMEPRAZOLE [Suspect]
     Active Substance: OMEPRAZOLE
  50. OMEPRAZOLE [Suspect]
     Active Substance: OMEPRAZOLE
  51. OMEPRAZOLE [Suspect]
     Active Substance: OMEPRAZOLE
  52. OMEPRAZOLE [Suspect]
     Active Substance: OMEPRAZOLE
     Dosage: 480 MILLIGRAM DAILY; 20 MG, 2X/DAY
  53. OMEPRAZOLE [Suspect]
     Active Substance: OMEPRAZOLE
     Dosage: 480 MILLIGRAM DAILY; 20 MG, 2X/DAY
  54. OMEPRAZOLE [Suspect]
     Active Substance: OMEPRAZOLE
  55. OMEPRAZOLE [Suspect]
     Active Substance: OMEPRAZOLE
     Dates: start: 20100917
  56. IRBESARTAN [Suspect]
     Active Substance: IRBESARTAN
     Indication: Abdominal discomfort
     Dates: start: 20100917
  57. IRBESARTAN [Suspect]
     Active Substance: IRBESARTAN
     Indication: Depression
     Dates: start: 20100917
  58. IRBESARTAN [Suspect]
     Active Substance: IRBESARTAN
     Dates: start: 20100912
  59. IRBESARTAN [Suspect]
     Active Substance: IRBESARTAN
  60. IRBESARTAN [Suspect]
     Active Substance: IRBESARTAN
     Dates: start: 20100912
  61. IRBESARTAN [Suspect]
     Active Substance: IRBESARTAN
     Dates: start: 20100917
  62. IRBESARTAN [Suspect]
     Active Substance: IRBESARTAN
     Dates: start: 20100917
  63. IRBESARTAN [Suspect]
     Active Substance: IRBESARTAN
     Dates: start: 20100917
  64. IRBESARTAN [Suspect]
     Active Substance: IRBESARTAN
  65. IRBESARTAN [Suspect]
     Active Substance: IRBESARTAN
  66. PHYLLOCONTIN [Suspect]
     Active Substance: AMINOPHYLLINE
     Indication: Product used for unknown indication
     Dates: start: 20100917
  67. PHYLLOCONTIN [Suspect]
     Active Substance: AMINOPHYLLINE
     Dates: start: 20100917
  68. PHYLLOCONTIN [Suspect]
     Active Substance: AMINOPHYLLINE
     Dates: start: 20200917
  69. PHYLLOCONTIN [Suspect]
     Active Substance: AMINOPHYLLINE
  70. PHYLLOCONTIN [Suspect]
     Active Substance: AMINOPHYLLINE
  71. PHYLLOCONTIN [Suspect]
     Active Substance: AMINOPHYLLINE
  72. PHYLLOCONTIN [Suspect]
     Active Substance: AMINOPHYLLINE
     Dates: start: 20200917
  73. CARBOCYSTEINE [Suspect]
     Active Substance: CARBOCYSTEINE
     Indication: Rheumatoid arthritis
     Dates: start: 20100917
  74. CARBOCYSTEINE [Suspect]
     Active Substance: CARBOCYSTEINE
     Dates: start: 20200917
  75. CARBOCYSTEINE [Suspect]
     Active Substance: CARBOCYSTEINE
  76. CARBOCYSTEINE [Suspect]
     Active Substance: CARBOCYSTEINE
  77. CARBOCYSTEINE [Suspect]
     Active Substance: CARBOCYSTEINE
     Dates: start: 20100917
  78. CARBOCYSTEINE [Suspect]
     Active Substance: CARBOCYSTEINE
     Dates: start: 20200917
  79. CARBOCYSTEINE [Suspect]
     Active Substance: CARBOCYSTEINE
     Dates: start: 20210917
  80. CARBOCYSTEINE [Suspect]
     Active Substance: CARBOCYSTEINE
     Dates: start: 20210917
  81. CARBOCYSTEINE [Suspect]
     Active Substance: CARBOCYSTEINE
     Dates: start: 20120917
  82. CARBOCYSTEINE [Suspect]
     Active Substance: CARBOCYSTEINE
  83. CARBOCYSTEINE [Suspect]
     Active Substance: CARBOCYSTEINE
  84. CARBOCYSTEINE [Suspect]
     Active Substance: CARBOCYSTEINE
  85. CARBAMAZEPINE [Suspect]
     Active Substance: CARBAMAZEPINE
     Indication: Depression
  86. CARBAMAZEPINE [Suspect]
     Active Substance: CARBAMAZEPINE
  87. CARBAMAZEPINE [Suspect]
     Active Substance: CARBAMAZEPINE
  88. CARBAMAZEPINE [Suspect]
     Active Substance: CARBAMAZEPINE
     Dates: start: 20200917
  89. CARBAMAZEPINE [Suspect]
     Active Substance: CARBAMAZEPINE
  90. CARBAMAZEPINE [Suspect]
     Active Substance: CARBAMAZEPINE
     Dates: start: 20210917
  91. CARBAMAZEPINE [Suspect]
     Active Substance: CARBAMAZEPINE
     Dates: start: 20100917
  92. DIPHENYLGUANIDINE [Suspect]
     Active Substance: DIPHENYLGUANIDINE
     Indication: Abdominal discomfort
  93. DIPHENYLGUANIDINE [Suspect]
     Active Substance: DIPHENYLGUANIDINE
     Indication: Depression
  94. DIPHENYLGUANIDINE [Suspect]
     Active Substance: DIPHENYLGUANIDINE
  95. DIPHENYLGUANIDINE [Suspect]
     Active Substance: DIPHENYLGUANIDINE
  96. DIPHENYLGUANIDINE [Suspect]
     Active Substance: DIPHENYLGUANIDINE
  97. DIPHENYLGUANIDINE [Suspect]
     Active Substance: DIPHENYLGUANIDINE
  98. DIPHENYLGUANIDINE [Suspect]
     Active Substance: DIPHENYLGUANIDINE
  99. DITIOCARB ZINC [Suspect]
     Active Substance: DITIOCARB ZINC
     Indication: Depression
  100. DITIOCARB ZINC [Suspect]
     Active Substance: DITIOCARB ZINC
     Indication: Abdominal discomfort
  101. DITIOCARB ZINC [Suspect]
     Active Substance: DITIOCARB ZINC
  102. DITIOCARB ZINC [Suspect]
     Active Substance: DITIOCARB ZINC
  103. DITIOCARB ZINC [Suspect]
     Active Substance: DITIOCARB ZINC
  104. DITIOCARB ZINC [Suspect]
     Active Substance: DITIOCARB ZINC
  105. VENLAFAXINE HYDROCHLORIDE [Suspect]
     Active Substance: VENLAFAXINE HYDROCHLORIDE
     Indication: Depression
  106. VENLAFAXINE HYDROCHLORIDE [Suspect]
     Active Substance: VENLAFAXINE HYDROCHLORIDE
     Indication: Rheumatoid arthritis
  107. VENLAFAXINE HYDROCHLORIDE [Suspect]
     Active Substance: VENLAFAXINE HYDROCHLORIDE
  108. VENLAFAXINE HYDROCHLORIDE [Suspect]
     Active Substance: VENLAFAXINE HYDROCHLORIDE
  109. CARBAMAZEPINE [Suspect]
     Active Substance: CARBAMAZEPINE
     Indication: Depression
  110. CARBAMAZEPINE [Suspect]
     Active Substance: CARBAMAZEPINE
     Indication: Rheumatoid arthritis
  111. CARBAMAZEPINE [Suspect]
     Active Substance: CARBAMAZEPINE
  112. CARBAMAZEPINE [Suspect]
     Active Substance: CARBAMAZEPINE
     Dates: start: 20100917
  113. CARBAMAZEPINE [Suspect]
     Active Substance: CARBAMAZEPINE
     Dates: start: 20200917
  114. CARBAMAZEPINE [Suspect]
     Active Substance: CARBAMAZEPINE
     Dates: start: 20210917
  115. CARBAMAZEPINE [Suspect]
     Active Substance: CARBAMAZEPINE
  116. CARBAMAZEPINE [Suspect]
     Active Substance: CARBAMAZEPINE
  117. CARBAMAZEPINE [Suspect]
     Active Substance: CARBAMAZEPINE
     Dates: start: 20100917
  118. CARBAMAZEPINE [Suspect]
     Active Substance: CARBAMAZEPINE
     Dates: start: 20210917
  119. CARBAMAZEPINE [Suspect]
     Active Substance: CARBAMAZEPINE
     Dates: start: 20100917
  120. CARBAMAZEPINE [Suspect]
     Active Substance: CARBAMAZEPINE
  121. GUANIDINE [Suspect]
     Active Substance: GUANIDINE
     Indication: Abdominal discomfort
     Dosage: 1,3-DIPHENYLGUANIDINE
  122. GUANIDINE [Suspect]
     Active Substance: GUANIDINE
     Indication: Depression
     Dosage: 1,3-DIPHENYLGUANIDINE
  123. GUANIDINE [Suspect]
     Active Substance: GUANIDINE
     Dosage: 1,3-DIPHENYLGUANIDINE
  124. GUANIDINE [Suspect]
     Active Substance: GUANIDINE
  125. GUANIDINE [Suspect]
     Active Substance: GUANIDINE
     Dosage: 1,3-DIPHENYLGUANIDINE
  126. GUANIDINE [Suspect]
     Active Substance: GUANIDINE
  127. CIPROFLOXACIN HYDROCHLORIDE [Suspect]
     Active Substance: CIPROFLOXACIN HYDROCHLORIDE
     Indication: Depression
     Dates: start: 20100917
  128. CIPROFLOXACIN HYDROCHLORIDE [Suspect]
     Active Substance: CIPROFLOXACIN HYDROCHLORIDE
     Indication: Rheumatoid arthritis
     Dates: start: 20100917
  129. CIPROFLOXACIN HYDROCHLORIDE [Suspect]
     Active Substance: CIPROFLOXACIN HYDROCHLORIDE
     Indication: Abdominal discomfort
     Dates: start: 20200917
  130. CIPROFLOXACIN HYDROCHLORIDE [Suspect]
     Active Substance: CIPROFLOXACIN HYDROCHLORIDE
  131. CIPROFLOXACIN HYDROCHLORIDE [Suspect]
     Active Substance: CIPROFLOXACIN HYDROCHLORIDE
  132. CIPROFLOXACIN HYDROCHLORIDE [Suspect]
     Active Substance: CIPROFLOXACIN HYDROCHLORIDE
  133. CIPROFLOXACIN HYDROCHLORIDE [Suspect]
     Active Substance: CIPROFLOXACIN HYDROCHLORIDE
  134. CIPROFLOXACIN HYDROCHLORIDE [Suspect]
     Active Substance: CIPROFLOXACIN HYDROCHLORIDE
  135. CIPROFLOXACIN HYDROCHLORIDE [Suspect]
     Active Substance: CIPROFLOXACIN HYDROCHLORIDE
  136. CIPROFLOXACIN HYDROCHLORIDE [Suspect]
     Active Substance: CIPROFLOXACIN HYDROCHLORIDE
     Dates: start: 20200917
  137. ZINC [Suspect]
     Active Substance: ZINC
     Indication: Abdominal discomfort
     Dosage: DIETHYLDITHIOCARBAMATE
  138. ZINC [Suspect]
     Active Substance: ZINC
     Indication: Depression
     Dosage: DIETHYLDITHIOCARBAMATE
  139. ZINC [Suspect]
     Active Substance: ZINC
  140. ZINC [Suspect]
     Active Substance: ZINC
  141. ZINC [Suspect]
     Active Substance: ZINC
  142. SULFAGUANIDINE [Suspect]
     Active Substance: SULFAGUANIDINE
     Indication: Abdominal discomfort
  143. SULFAGUANIDINE [Suspect]
     Active Substance: SULFAGUANIDINE
  144. SULFAGUANIDINE [Suspect]
     Active Substance: SULFAGUANIDINE
  145. SULFAGUANIDINE [Suspect]
     Active Substance: SULFAGUANIDINE
  146. SULFAGUANIDINE [Suspect]
     Active Substance: SULFAGUANIDINE
  147. AMINOPHYLLINE [Suspect]
     Active Substance: AMINOPHYLLINE
     Indication: Product used for unknown indication
     Dates: start: 20100917
  148. AMINOPHYLLINE [Suspect]
     Active Substance: AMINOPHYLLINE
     Dates: start: 20200917
  149. AMINOPHYLLINE [Suspect]
     Active Substance: AMINOPHYLLINE
     Dates: start: 20100917
  150. AMINOPHYLLINE [Suspect]
     Active Substance: AMINOPHYLLINE
  151. AMINOPHYLLINE [Suspect]
     Active Substance: AMINOPHYLLINE
  152. AMINOPHYLLINE [Suspect]
     Active Substance: AMINOPHYLLINE
  153. AMINOPHYLLINE [Suspect]
     Active Substance: AMINOPHYLLINE
  154. CHARCOAL ACTIVATED [Suspect]
     Active Substance: ACTIVATED CHARCOAL
     Indication: Product used for unknown indication
  155. CHARCOAL ACTIVATED [Suspect]
     Active Substance: ACTIVATED CHARCOAL
  156. CHARCOAL ACTIVATED [Suspect]
     Active Substance: ACTIVATED CHARCOAL
  157. CHARCOAL ACTIVATED [Suspect]
     Active Substance: ACTIVATED CHARCOAL
  158. THEOPHYLLINE [Suspect]
     Active Substance: THEOPHYLLINE
     Indication: Depression
  159. THEOPHYLLINE [Suspect]
     Active Substance: THEOPHYLLINE
  160. THEOPHYLLINE [Suspect]
     Active Substance: THEOPHYLLINE
  161. AMOXICILLIN [Suspect]
     Active Substance: AMOXICILLIN
     Indication: Abdominal discomfort
     Dosage: 125 MG/ 5 ML
     Dates: start: 20210904
  162. AMOXICILLIN [Suspect]
     Active Substance: AMOXICILLIN
     Dosage: 125 MG /5 ML
  163. AMOXICILLIN [Suspect]
     Active Substance: AMOXICILLIN
     Dates: start: 20210904
  164. PROBIOTICS NOS [Suspect]
     Active Substance: PROBIOTICS NOS
     Indication: Abdominal discomfort
  165. PROBIOTICS NOS [Suspect]
     Active Substance: PROBIOTICS NOS
     Indication: Depression
  166. VENLAFAXINE [Suspect]
     Active Substance: VENLAFAXINE HYDROCHLORIDE
     Indication: Rheumatoid arthritis
  167. VENLAFAXINE [Suspect]
     Active Substance: VENLAFAXINE HYDROCHLORIDE
     Indication: Depression
  168. VENLAFAXINE [Suspect]
     Active Substance: VENLAFAXINE HYDROCHLORIDE
  169. VENLAFAXINE [Suspect]
     Active Substance: VENLAFAXINE HYDROCHLORIDE
  170. BIFIDOBACTERIUM LONGUM [Suspect]
     Active Substance: BIFIDOBACTERIUM LONGUM
     Indication: Abdominal discomfort
  171. BIFIDOBACTERIUM LONGUM [Suspect]
     Active Substance: BIFIDOBACTERIUM LONGUM
     Indication: Depression
  172. BIFIDOBACTERIUM LONGUM [Suspect]
     Active Substance: BIFIDOBACTERIUM LONGUM
  173. BIFIDOBACTERIUM LONGUM [Suspect]
     Active Substance: BIFIDOBACTERIUM LONGUM
  174. SIMETHICONE (DIMETHICONE) [Suspect]
     Active Substance: DIMETHICONE
     Indication: Product used for unknown indication
  175. ACTIVATED CHARCOAL [Concomitant]
     Active Substance: ACTIVATED CHARCOAL
     Route: 065
  176. CABERGOLINE [Concomitant]
     Active Substance: CABERGOLINE
     Indication: Pituitary tumour
     Route: 065
  177. CABERGOLINE [Concomitant]
     Active Substance: CABERGOLINE
     Indication: Empty sella syndrome
     Route: 065
  178. CABERGOLINE [Concomitant]
     Active Substance: CABERGOLINE
     Indication: Rheumatoid arthritis
     Route: 065
  179. CABERGOLINE [Concomitant]
     Active Substance: CABERGOLINE
     Route: 065
  180. CABERGOLINE [Concomitant]
     Active Substance: CABERGOLINE
     Route: 065
  181. CABERGOLINE [Concomitant]
     Active Substance: CABERGOLINE
     Route: 065
  182. CABERGOLINE [Concomitant]
     Active Substance: CABERGOLINE
     Route: 065
  183. LEVOTHYROXINE [Concomitant]
     Active Substance: LEVOTHYROXINE
     Indication: Abdominal discomfort
     Route: 065
  184. LEVOTHYROXINE [Concomitant]
     Active Substance: LEVOTHYROXINE
     Indication: Pituitary tumour
     Route: 016
  185. LEVOTHYROXINE [Concomitant]
     Active Substance: LEVOTHYROXINE
     Indication: Empty sella syndrome
     Route: 016
  186. BENDROFLUMETHIAZIDE [Concomitant]
     Active Substance: BENDROFLUMETHIAZIDE
     Indication: Pituitary tumour
     Route: 065
  187. BENDROFLUMETHIAZIDE [Concomitant]
     Active Substance: BENDROFLUMETHIAZIDE
     Indication: Depression
     Route: 065
  188. BENDROFLUMETHIAZIDE [Concomitant]
     Active Substance: BENDROFLUMETHIAZIDE
     Route: 065
  189. BENDROFLUMETHIAZIDE [Concomitant]
     Active Substance: BENDROFLUMETHIAZIDE
     Route: 065
  190. BENDROFLUMETHIAZIDE [Concomitant]
     Active Substance: BENDROFLUMETHIAZIDE
     Route: 065
  191. CETIRIZINE [Concomitant]
     Active Substance: CETIRIZINE HYDROCHLORIDE
     Indication: Abdominal discomfort
     Route: 065
  192. CETIRIZINE [Concomitant]
     Active Substance: CETIRIZINE HYDROCHLORIDE
     Indication: Rheumatoid arthritis
     Route: 065
  193. CETIRIZINE [Concomitant]
     Active Substance: CETIRIZINE HYDROCHLORIDE
     Route: 065
  194. CETIRIZINE [Concomitant]
     Active Substance: CETIRIZINE HYDROCHLORIDE
     Route: 065
  195. EZETIMIBE [Concomitant]
     Active Substance: EZETIMIBE
     Route: 065
  196. EZETIMIBE [Concomitant]
     Active Substance: EZETIMIBE
     Route: 065
  197. EZETIMIBE [Concomitant]
     Active Substance: EZETIMIBE
     Dosage: MYCLIC PEN
     Route: 065
     Dates: start: 20210917
  198. EZETIMIBE [Concomitant]
     Active Substance: EZETIMIBE
     Dosage: MYCLIC PEN
     Route: 065
     Dates: start: 20210917
  199. ORUVAIL [Concomitant]
     Active Substance: KETOPROFEN
     Indication: Empty sella syndrome
     Route: 065
  200. ORUVAIL [Concomitant]
     Active Substance: KETOPROFEN
     Route: 065
  201. ORUVAIL [Concomitant]
     Active Substance: KETOPROFEN
     Route: 065
  202. ORUVAIL [Concomitant]
     Active Substance: KETOPROFEN
     Route: 065
  203. ORUVAIL [Concomitant]
     Active Substance: KETOPROFEN
     Route: 065
  204. ORUVAIL [Concomitant]
     Active Substance: KETOPROFEN
     Route: 065
  205. FOLIC ACID [Concomitant]
     Active Substance: FOLIC ACID
     Indication: Rheumatoid arthritis
     Route: 065
  206. FOLIC ACID [Concomitant]
     Active Substance: FOLIC ACID
     Route: 065
  207. FOLIC ACID [Concomitant]
     Active Substance: FOLIC ACID
     Route: 065
  208. FOLIC ACID [Concomitant]
     Active Substance: FOLIC ACID
     Route: 065
  209. CHARCOAL ACTIVATED [Concomitant]
     Active Substance: ACTIVATED CHARCOAL
     Route: 065
  210. CHARCOAL ACTIVATED [Concomitant]
     Active Substance: ACTIVATED CHARCOAL
     Route: 065
  211. CHARCOAL ACTIVATED [Concomitant]
     Active Substance: ACTIVATED CHARCOAL
     Route: 065
  212. DOXYCYCLINE [Concomitant]
     Active Substance: DOXYCYCLINE
     Indication: Pulmonary pain
     Route: 065
  213. THEOPHYLLINE [Concomitant]
     Active Substance: THEOPHYLLINE
     Indication: Depression
     Route: 065
  214. THEOPHYLLINE [Concomitant]
     Active Substance: THEOPHYLLINE
     Indication: Abdominal discomfort
     Route: 065
  215. THEOPHYLLINE [Concomitant]
     Active Substance: THEOPHYLLINE
     Route: 065
  216. KETOPROFEN [Concomitant]
     Active Substance: KETOPROFEN
     Route: 065

REACTIONS (10)
  - Medication error [Unknown]
  - Drug abuse [Unknown]
  - Intentional product misuse [Unknown]
  - Lower respiratory tract infection [Not Recovered/Not Resolved]
  - Pulmonary pain [Unknown]
  - Arthropathy [Unknown]
  - Rash [Not Recovered/Not Resolved]
  - Abdominal discomfort [Unknown]
  - Amyloid arthropathy [Unknown]
  - Obesity [Unknown]

NARRATIVE: CASE EVENT DATE: 20201001
